FAERS Safety Report 16908522 (Version 2)
Quarter: 2019Q4

REPORT INFORMATION
  Report Type: Spontaneous
  Country: US (occurrence: US)
  Receive Date: 20191011
  Receipt Date: 20191021
  Transmission Date: 20200122
  Serious: Yes (Other)
  Sender: FDA-Public Use
  Company Number: US-PFIZER INC-2019439898

PATIENT
  Age: 57 Year
  Sex: Female

DRUGS (1)
  1. AROMASIN [Suspect]
     Active Substance: EXEMESTANE
     Indication: BREAST CANCER FEMALE
     Dosage: 25 MG, UNK

REACTIONS (10)
  - Asthenia [Unknown]
  - Swelling [Unknown]
  - Sinus disorder [Unknown]
  - Staphylococcal infection [Unknown]
  - Chest pain [Unknown]
  - Pain [Unknown]
  - Palpitations [Unknown]
  - Pain in extremity [Unknown]
  - Skin discolouration [Unknown]
  - Joint swelling [Unknown]

NARRATIVE: CASE EVENT DATE: 2014
